FAERS Safety Report 7316345-1 (Version None)
Quarter: 2011Q1

REPORT INFORMATION
  Report Type: 
  Country: None (occurrence: None)
  Receive Date: 20110225
  Receipt Date: 20110216
  Transmission Date: 20110831
  Serious: Yes (Hospitalization, Disabling)
  Sender: FDA-Public Use
  Company Number: BE-GENENTECH-313575

PATIENT
  Sex: Male
  Weight: 78 kg

DRUGS (19)
  1. MABTHERA [Suspect]
     Dosage: 1000 MG/M2, UNK
     Route: 042
     Dates: start: 20100105
  2. MABTHERA [Suspect]
     Dosage: 1000 MG/M2, UNK
     Route: 042
     Dates: start: 20100209
  3. CYCLOPHOSPHAMIDE [Suspect]
     Dosage: 250 MG/M2, UNK
     Route: 065
     Dates: start: 20100104
  4. FLUDARA [Suspect]
     Dosage: 25 MG/M2, UNK
     Route: 065
     Dates: start: 20091027
  5. CYCLOPHOSPHAMIDE [Suspect]
     Dosage: 250 MG/M2, UNK
     Route: 065
     Dates: start: 20091123
  6. FOLAVIT [Concomitant]
     Indication: VITAMIN SUPPLEMENTATION
     Dosage: 4 MG, UNK
     Dates: start: 20091231, end: 20110208
  7. CYCLOPHOSPHAMIDE [Suspect]
     Dosage: 125 MG/M2, UNK
     Route: 065
     Dates: start: 20100208, end: 20100309
  8. MABTHERA [Suspect]
     Dosage: 500 MG/M2, UNK
     Route: 042
     Dates: start: 20091124
  9. CYCLOPHOSPHAMIDE [Suspect]
     Indication: CHRONIC LYMPHOCYTIC LEUKAEMIA
     Dosage: 250 MG/M2, UNK
     Route: 065
     Dates: start: 20090929
  10. MABTHERA [Suspect]
     Indication: CHRONIC LYMPHOCYTIC LEUKAEMIA
     Dosage: 375 MG/M2, UNK
     Route: 042
     Dates: start: 20091028
  11. MABTHERA [Suspect]
     Dosage: 1 G, UNK
     Route: 042
     Dates: start: 20100622
  12. FLUDARA [Suspect]
     Indication: CHRONIC LYMPHOCYTIC LEUKAEMIA
     Dosage: 25 MG/M2, UNK
     Route: 065
     Dates: start: 20090929
  13. FLUDARA [Suspect]
     Dosage: 25 MG/M2, UNK
     Route: 065
     Dates: start: 20100104
  14. SYMBICORT [Concomitant]
     Indication: CHRONIC OBSTRUCTIVE PULMONARY DISEASE
     Dosage: UNK
     Dates: start: 20030101, end: 20110209
  15. FLUDARA [Suspect]
     Dosage: 25 MG/M2, UNK
     Route: 065
     Dates: start: 20091123
  16. FLUDARA [Suspect]
     Dosage: 12.5 MG/M2, UNK
     Route: 065
     Dates: start: 20100208, end: 20100309
  17. CYCLOPHOSPHAMIDE [Suspect]
     Dosage: 250 MG/M2, UNK
     Route: 065
     Dates: start: 20091027
  18. SULFAMETHOXAZOLE AND TRIMETHOPRIM DOUBLE STRENGTH [Concomitant]
     Indication: ANTIBIOTIC PROPHYLAXIS
     Dosage: 800 MG, UNK
     Dates: start: 20090929, end: 20110208
  19. BEFACT FORTE [Concomitant]
     Indication: VITAMIN SUPPLEMENTATION
     Dosage: UNK
     Dates: start: 20100416, end: 20110208

REACTIONS (4)
  - PROGRESSIVE MULTIFOCAL LEUKOENCEPHALOPATHY [None]
  - PNEUMONIA [None]
  - PANCYTOPENIA [None]
  - RESPIRATORY FAILURE [None]
